FAERS Safety Report 8577615 (Version 3)
Quarter: 2012Q4

REPORT INFORMATION
  Report Type: Spontaneous
  Country: US (occurrence: None)
  Receive Date: 20120518
  Receipt Date: 20120828
  Transmission Date: 20130627
  Serious: Yes (Hospitalization, Other)
  Sender: FDA-Public Use
  Company Number: 2012P1020127

PATIENT
  Age: 62 Year
  Weight: 92.99 kg

DRUGS (13)
  1. WARFARIN SODIUM [Suspect]
     Indication: PULMONARY EMBOLISM
     Dosage: 2 MG;QD;PO
     Route: 048
     Dates: start: 20120309, end: 201204
  2. METHADONE HYDROCHLORIDE [Suspect]
     Indication: PAIN MANAGEMENT
  3. NORCO [Concomitant]
  4. TESTOSTERONE [Concomitant]
  5. FLUTICASONE PROPIONATE [Concomitant]
  6. POTASSIUM GLUCONATE [Concomitant]
  7. KLONOPIN (CLONAZEPAM) [Concomitant]
  8. RECLAST [Concomitant]
  9. VITAMIN D3 [Concomitant]
  10. MULTIVITAMIN [Concomitant]
  11. VITAMIN C [Concomitant]
  12. COMBIVENT [Concomitant]
  13. CARISOPRODOL [Concomitant]

REACTIONS (10)
  - Loss of consciousness [None]
  - Cardiac failure [None]
  - Prothrombin time prolonged [None]
  - International normalised ratio increased [None]
  - Skin discolouration [None]
  - Fall [None]
  - Dizziness [None]
  - Limb injury [None]
  - Product substitution issue [None]
  - Product quality issue [None]
